FAERS Safety Report 23180584 (Version 3)
Quarter: 2023Q4

REPORT INFORMATION
  Report Type: Report from Study
  Country: GB (occurrence: GB)
  Receive Date: 20231114
  Receipt Date: 20231219
  Transmission Date: 20240110
  Serious: Yes (Other)
  Sender: FDA-Public Use
  Company Number: GB-002147023-NVSC2022GB296440

PATIENT
  Age: 41 Year
  Sex: Female

DRUGS (1)
  1. KESIMPTA [Suspect]
     Active Substance: OFATUMUMAB
     Indication: Multiple sclerosis
     Dosage: 20 MG, QMO
     Route: 058
     Dates: start: 20221214

REACTIONS (17)
  - Lower respiratory tract infection [Unknown]
  - Panic attack [Unknown]
  - Diaphragmalgia [Unknown]
  - Urinary incontinence [Unknown]
  - Paraesthesia [Unknown]
  - Pain in extremity [Unknown]
  - Oropharyngeal pain [Unknown]
  - Nausea [Recovered/Resolved]
  - Fatigue [Recovered/Resolved]
  - Influenza [Recovered/Resolved]
  - Headache [Unknown]
  - Nasopharyngitis [Unknown]
  - Illness [Unknown]
  - Viral infection [Recovered/Resolved]
  - Malaise [Recovered/Resolved]
  - Nasopharyngitis [Recovered/Resolved]
  - Inappropriate schedule of product administration [Recovered/Resolved]

NARRATIVE: CASE EVENT DATE: 20221214
